FAERS Safety Report 6653725-1 (Version None)
Quarter: 2010Q1

REPORT INFORMATION
  Report Type: 
  Country: None (occurrence: None)
  Receive Date: 20100326
  Receipt Date: 20100316
  Transmission Date: 20100710
  Serious: Yes (Death, Other)
  Sender: FDA-Public Use
  Company Number: JP-BRISTOL-MYERS SQUIBB COMPANY-15024425

PATIENT
  Age: 56 Year
  Sex: Female
  Weight: 53 kg

DRUGS (2)
  1. PARAPLATIN [Suspect]
     Indication: LUNG SQUAMOUS CELL CARCINOMA STAGE UNSPECIFIED
     Dosage: DRUG INTERRUPTED.
     Route: 041
     Dates: start: 20080111, end: 20090729
  2. GEMZAR [Suspect]
     Indication: LUNG SQUAMOUS CELL CARCINOMA STAGE UNSPECIFIED
     Dosage: DRUG INTERRUPTED.
     Route: 041
     Dates: start: 20080812, end: 20090805

REACTIONS (2)
  - DEATH [None]
  - SCLERODERMA [None]
